FAERS Safety Report 4277203-2 (Version None)
Quarter: 2004Q1

REPORT INFORMATION
  Report Type: 
  Country: None (occurrence: None)
  Receive Date: 20040120
  Receipt Date: 20040105
  Transmission Date: 20041129
  Serious: Yes (Hospitalization)
  Sender: FDA-Public Use
  Company Number: 03P-087-0233135-00

PATIENT
  Age: 36 Year
  Sex: Male

DRUGS (19)
  1. NORVIR [Suspect]
     Indication: HIV INFECTION
     Dosage: 800 MG, 1 IN 1 D, PER ORAL
     Route: 048
     Dates: start: 19990929, end: 20021028
  2. KALETRA [Suspect]
     Indication: HIV INFECTION
     Dosage: 1 CAPSULE, 6 IN 1 D, PER ORAL
     Route: 048
     Dates: start: 20030219
  3. DIDANOSINE [Suspect]
     Indication: HIV INFECTION
     Dosage: 400 MG, 1 IN 1 D, PER ORAL
     Route: 048
     Dates: start: 20020401, end: 20021028
  4. STAVUDINE [Suspect]
     Indication: HIV INFECTION
     Dosage: 80 MG 1 IN 1 D, PER ORAL
     Route: 048
     Dates: start: 20020401, end: 20021021
  5. SAQUINAVIR [Suspect]
     Indication: HIV INFECTION
     Dosage: 800 MG, 1 IN 1 D, PER ORAL
     Route: 048
     Dates: start: 20020401, end: 20021028
  6. ABACAVIR [Suspect]
     Indication: HIV INFECTION
     Dosage: 600 MG 1 IN 1 D PER ORAL
     Route: 048
     Dates: start: 20021022, end: 20021028
  7. BLOOD COAGULATION FACTORS [Concomitant]
  8. POLAPREZINC [Concomitant]
  9. MEFENAMIC ACID [Concomitant]
  10. BROTIZOLAM [Concomitant]
  11. SENNOSIDE [Concomitant]
  12. OMEPRAZOLE [Concomitant]
  13. LOXOPROFEN SODIUM [Concomitant]
  14. TRIAZOLAM [Concomitant]
  15. ITOPRIDE HYDROCHLORIDE [Concomitant]
  16. MAGNESIUM OXIDE [Concomitant]
  17. LAMIVUDINE [Concomitant]
  18. TENOFOVIR [Concomitant]
  19. RIBAVIRIN [Concomitant]

REACTIONS (4)
  - DISSEMINATED INTRAVASCULAR COAGULATION [None]
  - GASTRIC ULCER [None]
  - HYPERLACTACIDAEMIA [None]
  - PANCREATITIS ACUTE [None]
